FAERS Safety Report 19775758 (Version 1)
Quarter: 2021Q3

REPORT INFORMATION
  Report Type: Spontaneous
  Country: GB (occurrence: GB)
  Receive Date: 20210901
  Receipt Date: 20210901
  Transmission Date: 20211014
  Serious: Yes (Other)
  Sender: FDA-Public Use
  Company Number: NVSC2021GB193667

PATIENT
  Age: 21 Year
  Sex: Male

DRUGS (3)
  1. LIDOCAINE. [Suspect]
     Active Substance: LIDOCAINE
     Indication: URETHRITIS GONOCOCCAL
     Dosage: UNK (1 G / 3.5 MLS)
     Route: 030
     Dates: start: 20210813, end: 20210813
  2. DIAZEPAM. [Concomitant]
     Active Substance: DIAZEPAM
     Indication: PRODUCT USED FOR UNKNOWN INDICATION
     Dosage: UNK
     Route: 065
  3. CEFTRIAXONE. [Suspect]
     Active Substance: CEFTRIAXONE
     Indication: URETHRITIS GONOCOCCAL
     Dosage: UNK (1 G / 3.5 MLS)
     Route: 030
     Dates: start: 20210813, end: 20210813

REACTIONS (2)
  - Joint dislocation [Unknown]
  - Clonic convulsion [Recovered/Resolved]

NARRATIVE: CASE EVENT DATE: 20210813
